FAERS Safety Report 5447342-9 (Version None)
Quarter: 2007Q3

REPORT INFORMATION
  Report Type: 
  Country: None (occurrence: None)
  Receive Date: 20070910
  Receipt Date: 20070906
  Transmission Date: 20080115
  Serious: Yes (Hospitalization, Other)
  Sender: FDA-Public Use
  Company Number: DE-BRISTOL-MYERS SQUIBB COMPANY-13868286

PATIENT
  Age: 34 Year
  Sex: Male
  Weight: 84 kg

DRUGS (3)
  1. BARACLUDE [Suspect]
     Indication: HEPATIC CIRRHOSIS
     Dates: start: 20061201, end: 20070301
  2. DOCITON [Concomitant]
  3. PHYTOMENADIONE [Concomitant]

REACTIONS (4)
  - EPILEPSY [None]
  - GRAND MAL CONVULSION [None]
  - LOSS OF CONSCIOUSNESS [None]
  - PROTEIN TOTAL INCREASED [None]
